FAERS Safety Report 7948868-6 (Version None)
Quarter: 2011Q4

REPORT INFORMATION
  Report Type: 
  Country: None (occurrence: None)
  Receive Date: 20111130
  Receipt Date: 20111125
  Transmission Date: 20120403
  Serious: Yes (Other)
  Sender: FDA-Public Use
  Company Number: CA-PFIZER INC-2011289401

PATIENT
  Age: 76 Year
  Sex: Male

DRUGS (1)
  1. VARENICLINE TARTRATE [Suspect]

REACTIONS (14)
  - RASH [None]
  - CONFUSIONAL STATE [None]
  - DISTURBANCE IN ATTENTION [None]
  - NERVOUSNESS [None]
  - AGGRESSION [None]
  - DEPRESSION [None]
  - IRRITABILITY [None]
  - FRUSTRATION [None]
  - AGITATION [None]
  - ARTHROPATHY [None]
  - SURGERY [None]
  - SKIN EXFOLIATION [None]
  - IMPATIENCE [None]
  - NIGHTMARE [None]
